FAERS Safety Report 25131434 (Version 1)
Quarter: 2025Q1

REPORT INFORMATION
  Report Type: Spontaneous
  Country: ES (occurrence: ES)
  Receive Date: 20250327
  Receipt Date: 20250327
  Transmission Date: 20250409
  Serious: Yes (Hospitalization, Other)
  Sender: TAIHO ONCOLOGY INC
  Company Number: ES-MMM-Otsuka-WX5GSUVI

PATIENT
  Age: 86 Year
  Sex: Female

DRUGS (1)
  1. INQOVI [Suspect]
     Active Substance: CEDAZURIDINE\DECITABINE
     Indication: Acute myeloid leukaemia
     Route: 048
     Dates: start: 20241230, end: 20250214

REACTIONS (7)
  - Klebsiella infection [Recovered/Resolved]
  - Enterococcal infection [Recovered/Resolved]
  - Ischaemic stroke [Recovered/Resolved]
  - Pulmonary embolism [Unknown]
  - Neutrophil count abnormal [Recovered/Resolved]
  - Haemoglobin abnormal [Recovered/Resolved]
  - Platelet disorder [Recovered/Resolved]

NARRATIVE: CASE EVENT DATE: 20250107
